FAERS Safety Report 11785867 (Version 1)
Quarter: 2015Q4

REPORT INFORMATION
  Report Type: Spontaneous
  Country: FR (occurrence: FR)
  Receive Date: 20151130
  Receipt Date: 20151130
  Transmission Date: 20160305
  Serious: Yes (Life-Threatening, Hospitalization)
  Sender: FDA-Public Use
  Company Number: FR-PFIZER INC-2015397397

PATIENT
  Age: 56 Year
  Sex: Male

DRUGS (8)
  1. PLAVIX [Concomitant]
     Active Substance: CLOPIDOGREL BISULFATE
     Dosage: UNK
  2. EUROBIOL [Concomitant]
     Dosage: UNK
  3. INEXIUM [Concomitant]
     Active Substance: ESOMEPRAZOLE
     Dosage: UNK
  4. VIAGRA [Suspect]
     Active Substance: SILDENAFIL CITRATE
     Indication: ERECTILE DYSFUNCTION
     Dosage: 50 MG, 1X/DAY
     Route: 048
     Dates: start: 20151025, end: 20151025
  5. ISOPHANE INSULIN [Concomitant]
     Active Substance: INSULIN NOS
     Dosage: UNK
  6. NOVOMIX [Concomitant]
     Active Substance: INSULIN ASPART
     Dosage: UNK
  7. TAHOR [Concomitant]
     Active Substance: ATORVASTATIN CALCIUM
     Dosage: UNK
  8. TAREG [Concomitant]
     Active Substance: VALSARTAN
     Dosage: UNK

REACTIONS (2)
  - Hypotension [Recovered/Resolved]
  - Chest pain [Recovered/Resolved]

NARRATIVE: CASE EVENT DATE: 20151025
